FAERS Safety Report 9294181 (Version 2)
Quarter: 2013Q2

REPORT INFORMATION
  Report Type: Spontaneous
  Country: US (occurrence: None)
  Receive Date: 20130514
  Receipt Date: 20130524
  Transmission Date: 20140414
  Serious: Yes (Hospitalization)
  Sender: FDA-Public Use
  Company Number: JPI-P-031561

PATIENT
  Age: 45 Year
  Sex: Female
  Weight: 106.6 kg

DRUGS (6)
  1. XYREM [Suspect]
     Indication: SLEEP DISORDER
     Dosage: 6GM (3GM, 2 IN 1 D) ORAL
     Route: 048
     Dates: start: 20060131
  2. BUPROPION HYDROCHLORIDE [Concomitant]
  3. LAMICTAL [Concomitant]
  4. CYMBALTA [Concomitant]
  5. ESOMEPRAZOLE [Concomitant]
  6. FLUTICASONE PROPIONATE W/ SALMETEROL [Concomitant]

REACTIONS (19)
  - Pain [None]
  - Immunodeficiency [None]
  - Cognitive disorder [None]
  - Chronic fatigue syndrome [None]
  - Condition aggravated [None]
  - Fibromyalgia [None]
  - Hip arthroplasty [None]
  - Surgical procedure repeated [None]
  - Adrenal insufficiency [None]
  - Coagulopathy [None]
  - Hypothyroidism [None]
  - Fibromyalgia [None]
  - Sleep disorder [None]
  - Bacterial infection [None]
  - Candida infection [None]
  - Endocrine disorder [None]
  - Insomnia [None]
  - Irritable bowel syndrome [None]
  - Malnutrition [None]
